FAERS Safety Report 8452734-X (Version None)
Quarter: 2012Q2

REPORT INFORMATION
  Report Type: 
  Country: None (occurrence: None)
  Receive Date: 20120620
  Receipt Date: 20120503
  Transmission Date: 20120825
  Serious: No
  Sender: FDA-Public Use
  Company Number: US-VERTEX PHARMACEUTICALS INC.-AE-2012-005877

PATIENT
  Sex: Male

DRUGS (6)
  1. ATARAX [Concomitant]
  2. INCIVEK [Suspect]
     Indication: HEPATITIS C
     Route: 048
     Dates: start: 20120101
  3. BENADRYL [Concomitant]
  4. PEGASYS [Concomitant]
     Indication: HEPATITIS C
     Route: 058
     Dates: start: 20120101
  5. NICORETTE [Concomitant]
  6. RIBASPHERE [Concomitant]
     Indication: HEPATITIS C
     Route: 048
     Dates: start: 20120101

REACTIONS (4)
  - RASH [None]
  - OEDEMA PERIPHERAL [None]
  - JOINT SWELLING [None]
  - WEIGHT INCREASED [None]
